FAERS Safety Report 6409146-X (Version None)
Quarter: 2009Q4

REPORT INFORMATION
  Report Type: 
  Country: None (occurrence: None)
  Receive Date: 20091021
  Receipt Date: 20091007
  Transmission Date: 20100525
  Serious: Yes (Other)
  Sender: FDA-Public Use
  Company Number: PHEH2008US06573

PATIENT
  Sex: Female

DRUGS (4)
  1. GLEEVEC [Suspect]
     Dosage: UNK
  2. GLEEVEC [Suspect]
     Dosage: 200 MG/DAY
     Dates: start: 20080714, end: 20090119
  3. GLEEVEC [Suspect]
     Dosage: 200 MG/DAY
     Dates: start: 20090707, end: 20090810
  4. VITAMIN E [Suspect]

REACTIONS (30)
  - ALANINE AMINOTRANSFERASE INCREASED [None]
  - ANAEMIA [None]
  - ASPARTATE AMINOTRANSFERASE INCREASED [None]
  - ASTHENIA [None]
  - BASOPHILIA [None]
  - BLOOD GLUCOSE INCREASED [None]
  - BONE MARROW FAILURE [None]
  - CHRONIC MYELOID LEUKAEMIA [None]
  - DIARRHOEA [None]
  - DRUG INTERACTION [None]
  - FATIGUE [None]
  - GASTROENTERITIS VIRAL [None]
  - HAEMATOCRIT DECREASED [None]
  - HAEMOGLOBIN DECREASED [None]
  - HEPATIC ENZYME INCREASED [None]
  - HEPATIC STEATOSIS [None]
  - MEAN CELL HAEMOGLOBIN DECREASED [None]
  - MEAN CELL VOLUME ABNORMAL [None]
  - MUSCLE SPASMS [None]
  - NAUSEA [None]
  - NIGHT SWEATS [None]
  - OVARIAN CANCER [None]
  - PANCYTOPENIA [None]
  - PLATELET COUNT INCREASED [None]
  - RADICAL HYSTERECTOMY [None]
  - RED BLOOD CELL COUNT DECREASED [None]
  - SERUM FERRITIN INCREASED [None]
  - URINARY TRACT INFECTION [None]
  - VOMITING [None]
  - WHITE BLOOD CELL COUNT DECREASED [None]
